FAERS Safety Report 7384434-1 (Version None)
Quarter: 2011Q1

REPORT INFORMATION
  Report Type: 
  Country: None (occurrence: None)
  Receive Date: 20110330
  Receipt Date: 20110325
  Transmission Date: 20110831
  Serious: Yes (Other)
  Sender: FDA-Public Use
  Company Number: FR-BRISTOL-MYERS SQUIBB COMPANY-15108947

PATIENT
  Age: 64 Year
  Sex: Male

DRUGS (8)
  1. COVERSYL [Concomitant]
     Dates: start: 20090727
  2. ZYLORIC [Concomitant]
     Dates: start: 20090727
  3. PLAVIX [Concomitant]
     Dosage: 1 DF = 75 UNIT NOS
     Dates: start: 20090727
  4. TAHOR [Concomitant]
     Dates: start: 20090727
  5. NEXIUM [Concomitant]
     Dates: start: 20090727
  6. DASATINIB [Suspect]
     Indication: CHRONIC MYELOID LEUKAEMIA
     Route: 048
     Dates: start: 20051218, end: 20100402
  7. TENORMIN [Concomitant]
     Dates: start: 20090727
  8. KARDEGIC [Concomitant]
     Dates: start: 20090727

REACTIONS (1)
  - THROMBOSIS [None]
